FAERS Safety Report 18755927 (Version 1)
Quarter: 2021Q1

REPORT INFORMATION
  Report Type: Spontaneous
  Country: PL (occurrence: PL)
  Receive Date: 20210119
  Receipt Date: 20210119
  Transmission Date: 20210419
  Serious: Yes (Other)
  Sender: FDA-Public Use
  Company Number: PL-TEVA-2021-PL-1870505

PATIENT
  Age: 49 Year
  Sex: Female

DRUGS (1)
  1. ACITRETIN. [Suspect]
     Active Substance: ACITRETIN
     Indication: NECROLYTIC MIGRATORY ERYTHEMA
     Route: 065

REACTIONS (2)
  - Off label use [Unknown]
  - Necrolytic migratory erythema [Recovered/Resolved]
